FAERS Safety Report 10624875 (Version 3)
Quarter: 2015Q3

REPORT INFORMATION
  Report Type: Report from Study
  Country: FR (occurrence: FR)
  Receive Date: 20141204
  Receipt Date: 20150707
  Transmission Date: 20151125
  Serious: Yes (Hospitalization)
  Sender: FDA-Public Use
  Company Number: FR-ROCHE-1497436

PATIENT
  Age: 47 Year
  Sex: Male
  Weight: 59.2 kg

DRUGS (25)
  1. KETOROLAC [Concomitant]
     Active Substance: KETOROLAC\KETOROLAC TROMETHAMINE
     Dosage: 1 DROP/3 TIMES A DAY EACH EYES
     Route: 065
     Dates: start: 20120915
  2. TRAMADOL. [Concomitant]
     Active Substance: TRAMADOL
     Dosage: PRN
     Route: 065
     Dates: start: 201304, end: 20140925
  3. HYALURONATE SODIUM [Concomitant]
     Active Substance: HYALURONATE SODIUM
     Route: 065
     Dates: start: 20130701, end: 20130701
  4. METHOTREXATE [Concomitant]
     Active Substance: METHOTREXATE
     Route: 065
     Dates: start: 20130108, end: 20130329
  5. DYNEXAN (FRANCE) [Concomitant]
     Dosage: 1 APPLICATION.
     Route: 065
     Dates: start: 20131007, end: 20131105
  6. TRAMADOL. [Concomitant]
     Active Substance: TRAMADOL
     Route: 065
     Dates: start: 20140628, end: 20140629
  7. FLURBIPROFENE [Concomitant]
     Active Substance: FLURBIPROFEN
     Route: 065
     Dates: start: 20140926
  8. AMOXICILLINE [Concomitant]
     Active Substance: AMOXICILLIN
     Route: 065
     Dates: start: 20131008, end: 20131018
  9. LOVENOX [Concomitant]
     Active Substance: ENOXAPARIN SODIUM
     Route: 065
     Dates: start: 20131007, end: 20131118
  10. PYOSTACINE [Concomitant]
     Active Substance: PRISTINAMYCIN
     Route: 065
     Dates: start: 20131105, end: 20131109
  11. METHOTREXATE [Concomitant]
     Active Substance: METHOTREXATE
     Route: 065
     Dates: start: 20131024, end: 20131130
  12. TRAMADOL. [Concomitant]
     Active Substance: TRAMADOL
     Route: 065
     Dates: start: 20140720, end: 20140720
  13. FLURBIPROFENE [Concomitant]
     Active Substance: FLURBIPROFEN
     Route: 065
     Dates: start: 20120629, end: 20140925
  14. METHOTREXATE [Concomitant]
     Active Substance: METHOTREXATE
     Dosage: 10MG/WEEK
     Route: 065
     Dates: start: 20130430, end: 20131022
  15. PARACETAMOL [Concomitant]
     Active Substance: ACETAMINOPHEN
     Dosage: AS NEEDED MAXIMUM 3G/DAY
     Route: 065
     Dates: start: 20130330
  16. FUCIDINE [Concomitant]
     Active Substance: FUSIDIC ACID
     Dosage: 2 APPLICATIONS PER DAY
     Route: 065
     Dates: start: 20140430
  17. METHOTREXATE [Concomitant]
     Active Substance: METHOTREXATE
     Dosage: 15MG/WEEK
     Route: 065
     Dates: start: 20130330, end: 20130429
  18. TOCILIZUMAB [Suspect]
     Active Substance: TOCILIZUMAB
     Indication: RHEUMATOID ARTHRITIS
     Dosage: DATE OF MOST RECENT DOSE PRIOR TO PULP NECROSIS ON RIGHT 1 IP THUMB AND 3 IPD: 18/AUG/2014
     Route: 058
     Dates: start: 20130301, end: 20140912
  19. RABEPRAZOLE [Concomitant]
     Active Substance: RABEPRAZOLE
     Route: 065
     Dates: start: 20120629
  20. TRAMADOL. [Concomitant]
     Active Substance: TRAMADOL
     Route: 065
     Dates: start: 20120413, end: 20130329
  21. FLECTOR [Concomitant]
     Active Substance: DICLOFENAC EPOLAMINE
     Dosage: 3 APPLICATIONS
     Route: 065
     Dates: start: 20140430
  22. METHOTREXATE [Concomitant]
     Active Substance: METHOTREXATE
     Route: 065
     Dates: start: 20131207
  23. ORENCIA [Concomitant]
     Active Substance: ABATACEPT
     Route: 065
     Dates: start: 20141122
  24. FOLIC ACID. [Concomitant]
     Active Substance: FOLIC ACID
     Dosage: 10MG/WEEK
     Route: 065
     Dates: start: 200909
  25. LAMALINE [Concomitant]
     Active Substance: ACETAMINOPHEN\CAFFEINE\OPIUM
     Dosage: 6 TAB
     Route: 065
     Dates: start: 20140925

REACTIONS (1)
  - Extremity necrosis [Recovered/Resolved]

NARRATIVE: CASE EVENT DATE: 20140912
